FAERS Safety Report 25872676 (Version 2)
Quarter: 2025Q4

REPORT INFORMATION
  Report Type: Spontaneous
  Country: JP (occurrence: JP)
  Receive Date: 20251002
  Receipt Date: 20251216
  Transmission Date: 20260117
  Serious: Yes (Life-Threatening, Other)
  Sender: ALEXION PHARMACEUTICALS
  Company Number: JP-ASTRAZENECA-202509JPN026899JP

PATIENT
  Age: 81 Year
  Sex: Female
  Weight: 49.1 kg

DRUGS (2)
  1. IMFINZI [Suspect]
     Active Substance: DURVALUMAB
     Indication: Bile duct cancer
     Dosage: 1500 MILLIGRAM, Q3W
     Dates: start: 20240122
  2. GEMCITABINE [Concomitant]
     Active Substance: GEMCITABINE
     Dosage: 1100 MILLIGRAM,  2-DAYS-ON, 1-DAY-OFF
     Route: 065

REACTIONS (1)
  - Immune-mediated hepatitis [Recovering/Resolving]

NARRATIVE: CASE EVENT DATE: 20240611
